FAERS Safety Report 9191013 (Version 1)
Quarter: 2013Q1

REPORT INFORMATION
  Report Type: Report from Study
  Country: JP (occurrence: JP)
  Receive Date: 20130326
  Receipt Date: 20130326
  Transmission Date: 20140127
  Serious: Yes (Hospitalization)
  Sender: FDA-Public Use
  Company Number: JP-ROCHE-1041214

PATIENT
  Age: 56 Year
  Sex: Male
  Weight: 62.1 kg

DRUGS (23)
  1. ADO-TRASTUZUMAB EMTANSINE [Suspect]
     Indication: BREAST CANCER METASTATIC
     Route: 042
     Dates: start: 20110922, end: 20120126
  2. CYCLOSPORINE [Concomitant]
     Route: 065
     Dates: end: 20120328
  3. MEVALOTIN [Concomitant]
     Indication: HYPERCHOLESTEROLAEMIA
     Route: 065
     Dates: start: 20110923, end: 20120215
  4. LOXONIN [Concomitant]
     Indication: CANCER PAIN
     Route: 065
     Dates: start: 20110923, end: 20120215
  5. MUCOSTA [Concomitant]
     Indication: GASTRITIS PROPHYLAXIS
     Route: 065
     Dates: start: 20110923, end: 20120215
  6. RHYTHMY [Concomitant]
     Indication: INSOMNIA
     Route: 065
     Dates: start: 20111006, end: 20120223
  7. METHYCOBAL [Concomitant]
     Indication: NEUROPATHY PERIPHERAL
     Route: 065
     Dates: start: 20120105, end: 20120215
  8. TAKEPRON OD [Concomitant]
     Indication: GASTRITIS PROPHYLAXIS
     Route: 065
     Dates: start: 20130219, end: 20130225
  9. ATARAX-P [Concomitant]
     Indication: INSOMNIA
     Route: 065
     Dates: start: 20120225
  10. FULCALIQ [Concomitant]
     Indication: MEDICAL DIET
     Route: 065
     Dates: start: 20120225, end: 20120226
  11. FULCALIQ [Concomitant]
     Indication: MEDICAL DIET
     Route: 065
     Dates: start: 20120227
  12. OMEPRAL [Concomitant]
     Indication: GASTRITIS PROPHYLAXIS
     Route: 065
     Dates: start: 20120226
  13. LENDORMIN [Concomitant]
     Indication: INSOMNIA
     Route: 065
     Dates: start: 20120224, end: 20120224
  14. PRODIF [Concomitant]
     Indication: INFECTION PROPHYLAXIS
     Route: 065
     Dates: start: 20120301, end: 20120301
  15. HEPARIN LOCK FLUSH SOLUTION [Concomitant]
     Route: 065
     Dates: start: 20120301, end: 20120305
  16. INTRALIPOS [Concomitant]
     Indication: MEDICAL DIET
     Route: 065
     Dates: start: 20120304
  17. PANTOSIN [Concomitant]
     Indication: CONSTIPATION PROPHYLAXIS
     Route: 065
     Dates: start: 20120229
  18. FUNGIZONE [Concomitant]
     Route: 065
     Dates: start: 20120302
  19. CRAVIT [Concomitant]
     Indication: EYE DISCHARGE
     Route: 065
     Dates: start: 20111213, end: 20120216
  20. AZUNOL [Concomitant]
     Indication: STOMATITIS
     Route: 065
     Dates: start: 20111213, end: 20120126
  21. AZUNOL [Concomitant]
     Route: 065
     Dates: start: 20120127, end: 20120215
  22. BERBERINE [Concomitant]
     Indication: EYE DISCHARGE
     Route: 065
     Dates: start: 20111108, end: 20120216
  23. PLACEBO [Suspect]
     Indication: BREAST CANCER METASTATIC
     Route: 042
     Dates: start: 20110922, end: 20120126

REACTIONS (1)
  - Interstitial lung disease [Not Recovered/Not Resolved]
